FAERS Safety Report 11452020 (Version 1)
Quarter: 2015Q3

REPORT INFORMATION
  Report Type: Spontaneous
  Country: US (occurrence: US)
  Receive Date: 20150903
  Receipt Date: 20150903
  Transmission Date: 20151125
  Serious: Yes (Other)
  Sender: FDA-Public Use
  Company Number: US-ROCHE-799418

PATIENT
  Age: 48 Year
  Sex: Female

DRUGS (10)
  1. TELAPREVIR [Suspect]
     Active Substance: TELAPREVIR
     Indication: HEPATITIS C
     Dosage: DRUG NAME REPORTED: INCIVEK
     Route: 065
     Dates: start: 20110825, end: 20111117
  2. RIBAVIRIN. [Suspect]
     Active Substance: RIBAVIRIN
     Route: 065
  3. PEGASYS [Suspect]
     Active Substance: PEGINTERFERON ALFA-2A
     Route: 058
  4. ATIVAN [Concomitant]
     Active Substance: LORAZEPAM
  5. PEGASYS [Suspect]
     Active Substance: PEGINTERFERON ALFA-2A
     Indication: HEPATITIS C
     Route: 058
  6. LEXAPRO [Concomitant]
     Active Substance: ESCITALOPRAM OXALATE
     Route: 065
  7. LORTAB [Concomitant]
     Active Substance: ACETAMINOPHEN\HYDROCODONE BITARTRATE
  8. ROBITUSSIN AC (UNITED STATES) [Concomitant]
     Indication: COUGH
  9. RIBAVIRIN. [Suspect]
     Active Substance: RIBAVIRIN
     Indication: HEPATITIS C
     Dosage: DIVIDED DOSES
     Route: 048
  10. PRISTIQ EXTENDED RELEASE [Concomitant]
     Active Substance: DESVENLAFAXINE SUCCINATE

REACTIONS (15)
  - Nasal congestion [Unknown]
  - Drug dose omission [Unknown]
  - Toothache [Unknown]
  - Depression [Unknown]
  - Fatigue [Unknown]
  - Alopecia [Unknown]
  - Cataract [Unknown]
  - Anxiety [Unknown]
  - Depression [Unknown]
  - Red blood cell count decreased [Unknown]
  - Cough [Unknown]
  - Oropharyngeal pain [Unknown]
  - Cough [Unknown]
  - Retinal detachment [Unknown]
  - Decreased appetite [Unknown]

NARRATIVE: CASE EVENT DATE: 20110824
